FAERS Safety Report 6846362-7 (Version None)
Quarter: 2010Q3

REPORT INFORMATION
  Report Type: 
  Country: None (occurrence: None)
  Receive Date: 20100715
  Receipt Date: 20081008
  Transmission Date: 20110219
  Serious: No
  Sender: FDA-Public Use
  Company Number: US-PFIZER INC-2007076701

PATIENT
  Sex: Female
  Weight: 112.49 kg

DRUGS (13)
  1. CHANTIX [Suspect]
     Indication: SMOKING CESSATION THERAPY
     Dates: start: 20070801
  2. NAVANE [Concomitant]
  3. CLONAZEPAM [Concomitant]
  4. LORAZEPAM [Concomitant]
  5. IBUPROFEN [Concomitant]
  6. LAMICTAL [Concomitant]
  7. ATENOLOL [Concomitant]
  8. BENICAR [Concomitant]
  9. METFORMIN HCL [Concomitant]
  10. ACTOS [Concomitant]
  11. NAVANE [Concomitant]
  12. FISH OIL [Concomitant]
  13. VITAMIN C [Concomitant]

REACTIONS (8)
  - ABNORMAL DREAMS [None]
  - CONSTIPATION [None]
  - FATIGUE [None]
  - FEELING ABNORMAL [None]
  - HYPERTENSION [None]
  - SOMNOLENCE [None]
  - THIRST [None]
  - TOBACCO WITHDRAWAL SYMPTOMS [None]
